FAERS Safety Report 8141562-0 (Version None)
Quarter: 2012Q1

REPORT INFORMATION
  Report Type: 
  Country: None (occurrence: None)
  Receive Date: 20120103
  Receipt Date: 20110829
  Transmission Date: 20120608
  Serious: No
  Sender: FDA-Public Use
  Company Number: AE-2011-001163

PATIENT
  Sex: Female

DRUGS (3)
  1. PEGASYS [Concomitant]
  2. RIBAVIRIN [Concomitant]
  3. INCIVEK [Suspect]
     Dates: start: 20110101

REACTIONS (1)
  - RASH [None]
